FAERS Safety Report 5299235-8 (Version None)
Quarter: 2007Q2

REPORT INFORMATION
  Report Type: 
  Country: None (occurrence: None)
  Receive Date: 20070411
  Receipt Date: 20070411
  Transmission Date: 20071010
  Serious: Yes (Life-Threatening, Hospitalization)
  Sender: FDA-Public Use
  Company Number: None

PATIENT
  Age: 79 Year
  Sex: Male
  Weight: 70 kg

DRUGS (1)
  1. CETUXIMAB 400 MG/M2 [Suspect]
     Indication: NEOPLASM MALIGNANT
     Dosage: 720 MG ONCE IV
     Route: 042
     Dates: start: 20070328

REACTIONS (4)
  - HYPERHIDROSIS [None]
  - HYPOTENSION [None]
  - PULSE ABSENT [None]
  - UNRESPONSIVE TO STIMULI [None]
